FAERS Safety Report 21948434 (Version 1)
Quarter: 2023Q1

REPORT INFORMATION
  Report Type: Report from Study
  Country: US (occurrence: US)
  Receive Date: 20230203
  Receipt Date: 20230203
  Transmission Date: 20230418
  Serious: No
  Sender: FDA-Public Use
  Company Number: US-002147023-NVSC2023US020205

PATIENT
  Sex: Male

DRUGS (2)
  1. COSENTYX [Suspect]
     Active Substance: SECUKINUMAB
     Indication: Product used for unknown indication
     Dosage: UNK (1 SHOT)
     Route: 065
  2. COSENTYX [Suspect]
     Active Substance: SECUKINUMAB
     Dosage: UNK (2 SHOTS)
     Route: 065

REACTIONS (2)
  - Dizziness [Unknown]
  - Poor quality sleep [Unknown]
